FAERS Safety Report 4598515-9 (Version None)
Quarter: 2005Q1

REPORT INFORMATION
  Report Type: 
  Country: None (occurrence: None)
  Receive Date: 20050304
  Receipt Date: 20050103
  Transmission Date: 20050727
  Serious: Yes (Other)
  Sender: FDA-Public Use
  Company Number: US-GLAXOSMITHKLINE-A0539722A

PATIENT
  Age: 73 Year
  Sex: Female
  Weight: 63.6 kg

DRUGS (2)
  1. NICODERM CQ [Suspect]
     Route: 062
     Dates: start: 20041101, end: 20041101
  2. MULTI-VITAMIN [Concomitant]
     Indication: VITAMIN SUPPLEMENTATION
     Route: 048

REACTIONS (5)
  - APPLICATION SITE ERYTHEMA [None]
  - APPLICATION SITE PRURITUS [None]
  - HYPERSENSITIVITY [None]
  - RETINAL DETACHMENT [None]
  - VISUAL DISTURBANCE [None]
